FAERS Safety Report 22585733 (Version 1)
Quarter: 2023Q2

REPORT INFORMATION
  Report Type: Spontaneous
  Country: CA (occurrence: CA)
  Receive Date: 20230610
  Receipt Date: 20230610
  Transmission Date: 20230721
  Serious: Yes (Other)
  Sender: FDA-Public Use
  Company Number: CA-Santen Oy-2023-CAN-005689

PATIENT
  Age: 33 Year
  Sex: Male

DRUGS (1)
  1. VERKAZIA [Suspect]
     Active Substance: CYCLOSPORINE
     Indication: Conjunctivitis
     Dosage: 4 TIMES DAILY
     Route: 047
     Dates: start: 20230529, end: 20230531

REACTIONS (6)
  - Drug hypersensitivity [Recovered/Resolved]
  - Swelling of eyelid [Recovered/Resolved]
  - Blepharospasm [Recovered/Resolved]
  - Lacrimation increased [Recovered/Resolved]
  - Eye pain [Recovered/Resolved]
  - Off label use [Unknown]

NARRATIVE: CASE EVENT DATE: 20230529
